FAERS Safety Report 4585680-2 (Version None)
Quarter: 2005Q1

REPORT INFORMATION
  Report Type: 
  Country: None (occurrence: None)
  Receive Date: 20050217
  Receipt Date: 20050207
  Transmission Date: 20050727
  Serious: Yes (Other)
  Sender: FDA-Public Use
  Company Number: PHBS2005CA02064

PATIENT
  Sex: Female

DRUGS (2)
  1. TEGRETOL [Suspect]
     Indication: CONVULSION
     Dosage: 1.25 ML, TID
     Route: 048
     Dates: start: 20041217
  2. TEGRETOL [Suspect]
     Dosage: 2.5 ML, BID
     Route: 048
     Dates: start: 20041229, end: 20050114

REACTIONS (16)
  - ABDOMINAL DISTENSION [None]
  - ANOREXIA [None]
  - COLLAPSE OF LUNG [None]
  - EYE SWELLING [None]
  - FATIGUE [None]
  - GINGIVAL BLEEDING [None]
  - HEPATIC ENZYME INCREASED [None]
  - HEPATOSPLENOMEGALY [None]
  - LETHARGY [None]
  - OEDEMA PERIPHERAL [None]
  - PLEURAL EFFUSION [None]
  - PYREXIA [None]
  - RASH [None]
  - SCREAMING [None]
  - SWELLING FACE [None]
  - VIRAL INFECTION [None]
